FAERS Safety Report 7177192-7 (Version None)
Quarter: 2010Q4

REPORT INFORMATION
  Report Type: 
  Country: None (occurrence: None)
  Receive Date: 20101220
  Receipt Date: 20101207
  Transmission Date: 20110411
  Serious: Yes (Hospitalization)
  Sender: FDA-Public Use
  Company Number: JP-ROCHE-713541

PATIENT
  Sex: Female

DRUGS (8)
  1. BEVACIZUMAB [Suspect]
     Dosage: UNK
     Route: 065
     Dates: start: 20100531
  2. RANIBIZUMAB [Suspect]
     Dosage: 0.05 ML, QD
     Route: 031
     Dates: start: 20090817
  3. CRAVIT [Concomitant]
     Dosage: UNK
     Dates: start: 20090801, end: 20100401
  4. HYALEIN [Concomitant]
     Dosage: UNK
     Dates: start: 20090824
  5. FLUMETHOLON [Concomitant]
     Dosage: UNK
     Dates: start: 20090916, end: 20100317
  6. HYALURONATE SODIUM [Concomitant]
     Dosage: UNK
     Dates: start: 20100413
  7. METHYLPREDNISOLONE ACETATE [Concomitant]
     Dosage: UNK
     Dates: start: 20100327
  8. NEOMYCIN SULFATE [Concomitant]
     Dosage: UNK
     Dates: start: 20100327

REACTIONS (6)
  - CONJUNCTIVITIS [None]
  - DRY EYE [None]
  - INAPPROPRIATE SCHEDULE OF DRUG ADMINISTRATION [None]
  - IRIDOCYCLITIS [None]
  - OCULAR HYPERAEMIA [None]
  - UVEITIS [None]
